FAERS Safety Report 16111000 (Version 1)
Quarter: 2019Q1

REPORT INFORMATION
  Report Type: Spontaneous
  Country: US (occurrence: US)
  Receive Date: 20190220
  Receipt Date: 20190220
  Transmission Date: 20190418
  Serious: No
  Sender: FDA-Public Use
  Company Number: None

PATIENT
  Age: 57 Year
  Sex: Female
  Weight: 57.61 kg

DRUGS (1)
  1. OLUMIANT [Suspect]
     Active Substance: BARICITINIB
     Indication: RHEUMATOID ARTHRITIS
     Dosage: AS DIRECTED
     Route: 048
     Dates: start: 201812

REACTIONS (4)
  - Gastroenteritis viral [None]
  - Diarrhoea [None]
  - Head discomfort [None]
  - Dyspepsia [None]
